FAERS Safety Report 8130616-0 (Version None)
Quarter: 2012Q1

REPORT INFORMATION
  Report Type: 
  Country: None (occurrence: None)
  Receive Date: 20120213
  Receipt Date: 20120206
  Transmission Date: 20120608
  Serious: Yes (Hospitalization)
  Sender: FDA-Public Use
  Company Number: US-BIOGENIDEC-2011BI030857

PATIENT
  Age: 25 Year
  Sex: Female

DRUGS (3)
  1. TYSABRI [Suspect]
     Indication: CROHN'S DISEASE
     Route: 042
     Dates: start: 20080701, end: 20110526
  2. MULTI-VITAMINS [Concomitant]
  3. ZOLOFT [Concomitant]
     Dates: end: 20110501

REACTIONS (3)
  - BRADYCARDIA FOETAL [None]
  - PRE-ECLAMPSIA [None]
  - PREGNANCY [None]
